FAERS Safety Report 5470493-X (Version None)
Quarter: 2007Q3

REPORT INFORMATION
  Report Type: 
  Country: None (occurrence: None)
  Receive Date: 20070820
  Receipt Date: 20070614
  Transmission Date: 20080115
  Serious: No
  Sender: FDA-Public Use
  Company Number: WAES 0706USA02593

PATIENT
  Sex: Male

DRUGS (2)
  1. JANUVIA [Suspect]
     Indication: DIABETES MELLITUS
     Dosage: PO
     Route: 048
     Dates: start: 20070607, end: 20070601
  2. ZOCOR [Concomitant]

REACTIONS (2)
  - MUSCULOSKELETAL PAIN [None]
  - UPPER RESPIRATORY TRACT INFECTION [None]
